FAERS Safety Report 21143396 (Version 2)
Quarter: 2022Q3

REPORT INFORMATION
  Report Type: Report from Study
  Country: US (occurrence: US)
  Receive Date: 20220728
  Receipt Date: 20220808
  Transmission Date: 20221027
  Serious: Yes (Hospitalization, Other)
  Sender: FDA-Public Use
  Company Number: US-RECORDATI-2022001559

PATIENT

DRUGS (10)
  1. ISTURISA [Suspect]
     Active Substance: OSILODROSTAT PHOSPHATE
     Indication: Pituitary-dependent Cushing^s syndrome
     Dosage: 5 MILLIGRAM, BID
     Route: 048
     Dates: start: 20200901
  2. ISTURISA [Suspect]
     Active Substance: OSILODROSTAT PHOSPHATE
     Dosage: 5 MILLIGRAM, BID
     Route: 048
     Dates: start: 20200930
  3. ISTURISA [Suspect]
     Active Substance: OSILODROSTAT PHOSPHATE
     Dosage: 3MG IN THE MORNING AND 5MG AT NIGHT
     Route: 048
     Dates: start: 20210917
  4. SPIRONOLACTONE [Concomitant]
     Active Substance: SPIRONOLACTONE
     Indication: Hyperaldosteronism
     Dosage: 75 MILLIGRAM, QD
  5. METOPROLOL TARTRATE [Concomitant]
     Active Substance: METOPROLOL TARTRATE
     Indication: Hypertension
     Dosage: 25 MILLIGRAM, BID
  6. OMEPRAZOLE [Concomitant]
     Active Substance: OMEPRAZOLE
     Indication: Gastrooesophageal reflux disease
     Dosage: 20 MILLIGRAM, BID
  7. VITAMIN D NOS [Concomitant]
     Active Substance: VITAMIN D NOS
     Indication: Hypovitaminosis
     Dosage: 1.25 MILLIGRAM, QOW
  8. DOXYCYCLINE [Concomitant]
     Active Substance: DOXYCYCLINE
     Indication: Acne
     Dosage: 40 MILLIGRAM, PRN
  9. VANIQA [EFLORNITHINE HYDROCHLORIDE] [Concomitant]
     Indication: Hair growth abnormal
     Dosage: 13.9 PERCENT, QD
     Route: 061
  10. BETAMETHASONE DIPROPIONATE [Concomitant]
     Active Substance: BETAMETHASONE DIPROPIONATE
     Indication: Eczema
     Dosage: 0.05 %
     Route: 061

REACTIONS (4)
  - Neoplasm progression [Not Recovered/Not Resolved]
  - Abdominal pain [Not Recovered/Not Resolved]
  - Off label use [Recovered/Resolved]
  - Product dose omission issue [Recovered/Resolved]

NARRATIVE: CASE EVENT DATE: 20210917
